FAERS Safety Report 8798389 (Version 1)
Quarter: 2012Q4

REPORT INFORMATION
  Report Type: 
  Country: US (occurrence: US)
  Receive Date: 20120920
  Receipt Date: 20120920
  Transmission Date: 20130627
  Serious: Yes (Other)
  Sender: FDA-Public Use
  Company Number: US-ASTRAZENECA-2012SE71989

PATIENT
  Age: 17958 Day
  Sex: Male

DRUGS (5)
  1. CRESTOR [Suspect]
     Route: 048
     Dates: start: 20080619
  2. ASPIRIN [Concomitant]
     Route: 048
     Dates: start: 20071219
  3. ACTOS [Concomitant]
     Route: 048
     Dates: start: 20091120
  4. METFORMIN [Concomitant]
     Route: 048
     Dates: start: 20111210
  5. BENICAR [Concomitant]
     Route: 048
     Dates: start: 20120508

REACTIONS (3)
  - Fracture [Unknown]
  - Back pain [Unknown]
  - Type 2 diabetes mellitus [Unknown]
